FAERS Safety Report 25017955 (Version 1)
Quarter: 2025Q1

REPORT INFORMATION
  Report Type: Spontaneous
  Country: ES (occurrence: ES)
  Receive Date: 20250227
  Receipt Date: 20250227
  Transmission Date: 20250408
  Serious: Yes (Life-Threatening, Hospitalization, Other)
  Sender: MERCK SHARP & DOHME LLC
  Company Number: None

PATIENT
  Age: 64 Year
  Sex: Male

DRUGS (11)
  1. PEMBROLIZUMAB [Suspect]
     Active Substance: PEMBROLIZUMAB
     Indication: Lung adenocarcinoma
     Route: 042
     Dates: start: 20231011
  2. DEXAMETHASONE [Concomitant]
     Active Substance: DEXAMETHASONE
     Dates: start: 20240421
  3. TRIXEO AEROSPHERE 5 micrograms/7.2 micrograms/160micrograms SUSPENS... [Concomitant]
     Dates: start: 20230329
  4. Loratadine 10 mg capsule [Concomitant]
     Dates: start: 20240327
  5. Paracetamol 1,000 mg 40 tablets [Concomitant]
     Dates: start: 20230329
  6. OMEPRAZOLE [Concomitant]
     Active Substance: OMEPRAZOLE
     Dates: start: 20240424
  7. Aprepitant 125 mg capsule [Concomitant]
     Dates: start: 20230807
  8. Montelukast 10 mg 28 tablets [Concomitant]
     Dates: start: 20220104
  9. Diazepam 5 mg tablet [Concomitant]
     Dates: start: 20240421
  10. VENTOLIN 100 micrograms/INHALATION SUSPENSION FORINHALATION IN PRES... [Concomitant]
     Dates: start: 20240216
  11. Cyanocobalamin/Folic acid 2 micrograms/400 microgramstablet [Concomitant]
     Dates: start: 20230620

REACTIONS (1)
  - Acquired haemophilia [Recovering/Resolving]

NARRATIVE: CASE EVENT DATE: 20240514
